FAERS Safety Report 5903846-3 (Version None)
Quarter: 2008Q3

REPORT INFORMATION
  Report Type: 
  Country: None (occurrence: None)
  Receive Date: 20080919
  Receipt Date: 20080828
  Transmission Date: 20090109
  Serious: Yes (Other)
  Sender: FDA-Public Use
  Company Number: US-WYE-H05780108

PATIENT
  Age: 54 Year
  Sex: Female
  Weight: 65.83 kg

DRUGS (5)
  1. PRISTIQ [Suspect]
     Indication: DEPRESSION
     Dosage: 50 MG 1X PER 1 DAY, ORAL
     Route: 048
     Dates: start: 20080423, end: 20080714
  2. STRATTERA [Concomitant]
  3. ADDERALL XR (AMPHETAMINE ASPARTATE/AMPHETAMINE SULFATE/DEXTROAMPHETAMI [Concomitant]
  4. OXYCODONE HCL [Concomitant]
  5. PREMPRO [Concomitant]

REACTIONS (3)
  - CONVULSION [None]
  - SINUS TACHYCARDIA [None]
  - SYNCOPE [None]
